FAERS Safety Report 18678877 (Version 1)
Quarter: 2020Q4

REPORT INFORMATION
  Report Type: Spontaneous
  Country: DE (occurrence: DE)
  Receive Date: 20201229
  Receipt Date: 20201229
  Transmission Date: 20210114
  Serious: Yes (Other)
  Sender: FDA-Public Use
  Company Number: DE-BAYER-2020-285889

PATIENT
  Sex: Female

DRUGS (1)
  1. INTERFERON BETA - 1B [Suspect]
     Active Substance: INTERFERON BETA-1B
     Indication: PRODUCT USED FOR UNKNOWN INDICATION
     Dosage: UNK
     Route: 065

REACTIONS (27)
  - Inflammation [None]
  - Metabolic disorder [None]
  - Hypercholesterolaemia [None]
  - Blood sodium decreased [None]
  - Renal failure [None]
  - Transaminases increased [None]
  - Histamine intolerance [None]
  - Dyslipidaemia [None]
  - Blood copper increased [None]
  - Cardiac disorder [None]
  - Hepatotoxicity [None]
  - Lymphocyte count increased [None]
  - Vitamin B6 increased [None]
  - Blood magnesium increased [None]
  - Hyperglycaemia [None]
  - Blood immunoglobulin G increased [None]
  - Hypertriglyceridaemia [None]
  - Neutrophil count decreased [None]
  - Blood zinc decreased [None]
  - Liver disorder [None]
  - Hypersensitivity [None]
  - Blood selenium increased [None]
  - Vitamin D deficiency [None]
  - Gamma-glutamyltransferase increased [None]
  - Blood creatine phosphokinase increased [None]
  - Ill-defined disorder [None]
  - Arterial disorder [None]
